FAERS Safety Report 20378710 (Version 1)
Quarter: 2022Q1

REPORT INFORMATION
  Report Type: Spontaneous
  Country: US (occurrence: US)
  Receive Date: 20220126
  Receipt Date: 20220126
  Transmission Date: 20220423
  Serious: Yes (Hospitalization)
  Sender: FDA-Public Use
  Company Number: US-RECORDATI RARE DISEASE INC.-2022000207

PATIENT
  Age: 12 Year
  Sex: Female
  Weight: 103.2 kg

DRUGS (5)
  1. DACTINOMYCIN [Suspect]
     Active Substance: DACTINOMYCIN
     Indication: Embryonal rhabdomyosarcoma
     Dosage: UNK
     Route: 042
     Dates: start: 20160804, end: 20161028
  2. CYCLOPHOSPHAMIDE [Suspect]
     Active Substance: CYCLOPHOSPHAMIDE
     Indication: Embryonal rhabdomyosarcoma
     Dosage: UNK
     Route: 042
     Dates: start: 20160804, end: 20161028
  3. VINCRISTINE [Suspect]
     Active Substance: VINCRISTINE
     Indication: Embryonal rhabdomyosarcoma
     Dosage: 4 MILLIGRAM
     Route: 042
     Dates: start: 20160804, end: 20161125
  4. IRINOTECAN [Suspect]
     Active Substance: IRINOTECAN
     Indication: Embryonal rhabdomyosarcoma
     Dosage: 500 MILLIGRAM
     Route: 042
     Dates: start: 20160804, end: 20161122
  5. TEMSIROLIMUS [Suspect]
     Active Substance: TEMSIROLIMUS
     Indication: Embryonal rhabdomyosarcoma
     Dosage: UNK
     Route: 042
     Dates: start: 20160804, end: 20161021

REACTIONS (1)
  - Radiation skin injury [Unknown]

NARRATIVE: CASE EVENT DATE: 20161202
